FAERS Safety Report 5047113-1 (Version None)
Quarter: 2006Q3

REPORT INFORMATION
  Report Type: 
  Country: None (occurrence: None)
  Receive Date: 20060711
  Receipt Date: 20060707
  Transmission Date: 20061208
  Serious: Yes (Death, Hospitalization)
  Sender: FDA-Public Use
  Company Number: GR-RB-3552-2006

PATIENT
  Age: 40 Year
  Sex: Female
  Weight: 40 kg

DRUGS (1)
  1. BUPRENORPHINE HCL [Suspect]
     Route: 048
     Dates: start: 20051102, end: 20060605

REACTIONS (1)
  - TUBERCULOSIS [None]
